FAERS Safety Report 19806185 (Version 2)
Quarter: 2021Q3

REPORT INFORMATION
  Report Type: Spontaneous
  Country: TH (occurrence: TH)
  Receive Date: 20210909
  Receipt Date: 20210927
  Transmission Date: 20211014
  Serious: Yes (Other)
  Sender: FDA-Public Use
  Company Number: TH-B.I. PHARMACEUTICALS,INC./RIDGEFIELD-2021-BI-125148

PATIENT
  Age: 61 Year
  Sex: Male
  Weight: 73 kg

DRUGS (6)
  1. GLIPIZIDE. [Suspect]
     Active Substance: GLIPIZIDE
     Dosage: GLIPIZIDE 5 MG 0.5*1
  2. GLIPIZIDE. [Suspect]
     Active Substance: GLIPIZIDE
     Indication: TYPE 2 DIABETES MELLITUS
     Dosage: GLIPIZIDE 5 MG DAILY
  3. GLIPIZIDE. [Suspect]
     Active Substance: GLIPIZIDE
     Dosage: GLIPIZIDE 5 MG 1*1
  4. TRAJENTA [Suspect]
     Active Substance: LINAGLIPTIN
     Indication: TYPE 2 DIABETES MELLITUS
     Dosage: LINAGLIPTIN (5 MG) 1*1
  5. GLIPIZIDE. [Suspect]
     Active Substance: GLIPIZIDE
     Dosage: GLIPIZIDE 5 MG BID
  6. GLICLAZIDE MR [Concomitant]
     Active Substance: GLICLAZIDE
     Indication: TYPE 2 DIABETES MELLITUS
     Dosage: GLICLAZIDE MR (60 MG) 0.5*1

REACTIONS (2)
  - Hypoglycaemia [Recovered/Resolved]
  - End stage renal disease [Not Recovered/Not Resolved]
